FAERS Safety Report 5587097-0 (Version None)
Quarter: 2008Q1

REPORT INFORMATION
  Report Type: 
  Country: None (occurrence: None)
  Receive Date: 20080110
  Receipt Date: 20071228
  Transmission Date: 20080703
  Serious: Yes (Hospitalization)
  Sender: FDA-Public Use
  Company Number: CH-WYE-H01985708

PATIENT
  Age: 74 Year
  Sex: Female

DRUGS (4)
  1. INDERAL [Suspect]
     Route: 048
  2. ABILIFY [Suspect]
     Route: 048
     Dates: end: 20071211
  3. STILNOX [Concomitant]
     Route: 065
  4. SURMONTIL [Suspect]
     Route: 048

REACTIONS (2)
  - FALL [None]
  - ORTHOSTATIC HYPOTENSION [None]
